FAERS Safety Report 6114211-0 (Version None)
Quarter: 2009Q1

REPORT INFORMATION
  Report Type: 
  Country: None (occurrence: None)
  Receive Date: 20090312
  Receipt Date: 20080730
  Transmission Date: 20090719
  Serious: No
  Sender: FDA-Public Use
  Company Number: US-ABBOTT-08P-163-0467435-00

PATIENT
  Sex: Female
  Weight: 83.99 kg

DRUGS (8)
  1. DEPAKOTE [Suspect]
     Indication: BIPOLAR DISORDER
     Route: 048
     Dates: start: 20080301, end: 20080401
  2. DEPAKOTE [Suspect]
     Route: 048
     Dates: start: 20080401, end: 20080501
  3. DEPAKOTE [Suspect]
     Route: 048
     Dates: start: 20080501, end: 20080701
  4. DEPAKOTE [Suspect]
     Route: 048
     Dates: start: 20080701, end: 20080715
  5. INVEGA [Concomitant]
     Indication: DEPRESSION
  6. LITHIUM CARBONATE [Concomitant]
     Indication: BIPOLAR DISORDER
  7. GABAPENTIN [Concomitant]
     Indication: ANXIETY
  8. TOPIRAMATE [Concomitant]
     Indication: DRUG USE FOR UNKNOWN INDICATION

REACTIONS (1)
  - ALOPECIA [None]
